FAERS Safety Report 5617367-9 (Version None)
Quarter: 2008Q1

REPORT INFORMATION
  Report Type: 
  Country: None (occurrence: None)
  Receive Date: 20080207
  Receipt Date: 20070711
  Transmission Date: 20080703
  Serious: No
  Sender: FDA-Public Use
  Company Number: A0663325A

PATIENT
  Sex: Female

DRUGS (2)
  1. PAROXETINE [Suspect]
     Indication: ANXIETY DISORDER
     Dosage: 10MG PER DAY
     Route: 048
     Dates: start: 19970101
  2. NO CONCURRENT MEDICATION [Concomitant]

REACTIONS (4)
  - DIZZINESS [None]
  - PARAESTHESIA [None]
  - THERAPEUTIC RESPONSE UNEXPECTED [None]
  - WITHDRAWAL SYNDROME [None]
